FAERS Safety Report 22928366 (Version 2)
Quarter: 2025Q2

REPORT INFORMATION
  Report Type: Spontaneous
  Country: US (occurrence: US)
  Receive Date: 20230911
  Receipt Date: 20250505
  Transmission Date: 20250716
  Serious: Yes (Hospitalization, Other)
  Sender: AUROBINDO
  Company Number: US-MLMSERVICE-20230825-4506173-1

PATIENT
  Age: 30 Year
  Sex: Male

DRUGS (5)
  1. CARBIDOPA\LEVODOPA [Interacting]
     Active Substance: CARBIDOPA\LEVODOPA
     Indication: Dopa-responsive dystonia
     Route: 065
  2. OXITRIPTAN [Interacting]
     Active Substance: OXITRIPTAN
     Indication: Dopa-responsive dystonia
     Route: 048
  3. SELEGILINE [Interacting]
     Active Substance: SELEGILINE
     Indication: Dopa-responsive dystonia
     Route: 065
  4. SELEGILINE [Interacting]
     Active Substance: SELEGILINE
     Route: 065
  5. SAPROPTERIN [Interacting]
     Active Substance: SAPROPTERIN
     Indication: Dopa-responsive dystonia
     Route: 065

REACTIONS (2)
  - Toxicity to various agents [Recovered/Resolved]
  - Drug interaction [Recovered/Resolved]
